FAERS Safety Report 8941307 (Version 1)
Quarter: 2012Q4

REPORT INFORMATION
  Report Type: Report from Study
  Country: GB (occurrence: GB)
  Receive Date: 20121203
  Receipt Date: 20121203
  Transmission Date: 20130627
  Serious: Yes (Hospitalization)
  Sender: FDA-Public Use
  Company Number: GB-ROCHE-1161223

PATIENT
  Age: 69 Year
  Sex: Male
  Weight: 65.4 kg

DRUGS (4)
  1. BEVACIZUMAB [Suspect]
     Indication: GASTRIC CANCER
     Dosage: Date of last dose prior to SAE: 13/Aug/2012
     Route: 042
     Dates: start: 20120127
  2. CAPECITABINE [Suspect]
     Indication: GASTRIC CANCER
     Dosage: Date of last dose prior to SAE: 13/Aug/2012
     Route: 048
     Dates: start: 20120127
  3. CISPLATIN [Suspect]
     Indication: GASTRIC CANCER
     Dosage: Date of last dose prior to SAE: 13/Aug/2012
     Route: 042
     Dates: start: 20120127
  4. EPIRUBICIN [Suspect]
     Indication: GASTRIC CANCER
     Dosage: Date of last dose prior to SAE: 13/Aug/2012
     Route: 042
     Dates: start: 20120127

REACTIONS (1)
  - Anastomotic haemorrhage [Recovered/Resolved]
